FAERS Safety Report 8381218-2 (Version None)
Quarter: 2012Q2

REPORT INFORMATION
  Report Type: 
  Country: None (occurrence: None)
  Receive Date: 20120522
  Receipt Date: 20111121
  Transmission Date: 20120825
  Serious: Yes (Hospitalization, Other)
  Sender: FDA-Public Use
  Company Number: 2011-08682

PATIENT
  Age: 51 Year
  Sex: Male

DRUGS (4)
  1. IMMUCYST [Suspect]
     Indication: BLADDER CANCER
     Dosage: 81.0 MG, I.VAS. BLADDER
     Route: 042
     Dates: start: 20101027, end: 20101215
  2. GLIMPERIDE [Concomitant]
  3. CISPLATIN [Concomitant]
  4. PIRARUBICIN [Concomitant]

REACTIONS (5)
  - HAEMATOCRIT DECREASED [None]
  - HYDRONEPHROSIS [None]
  - TUBERCULOSIS BLADDER [None]
  - HAEMOGLOBIN DECREASED [None]
  - RENAL IMPAIRMENT [None]
